APPROVED DRUG PRODUCT: BETAMETHASONE VALERATE
Active Ingredient: BETAMETHASONE VALERATE
Strength: 0.12%
Dosage Form/Route: AEROSOL, FOAM;TOPICAL
Application: A078337 | Product #001 | TE Code: AB
Applicant: PADAGIS ISRAEL PHARMACEUTICALS LTD
Approved: Nov 26, 2012 | RLD: No | RS: No | Type: RX